FAERS Safety Report 20805826 (Version 3)
Quarter: 2022Q3

REPORT INFORMATION
  Report Type: Report from Study
  Country: CH (occurrence: CH)
  Receive Date: 20220510
  Receipt Date: 20220812
  Transmission Date: 20221027
  Serious: Yes (Congenital Anomaly, Other)
  Sender: FDA-Public Use
  Company Number: SZ-LAURUS LABS LIMITED-2022LAU000001

PATIENT
  Sex: Female

DRUGS (4)
  1. LOPINAVIR\RITONAVIR [Suspect]
     Active Substance: LOPINAVIR\RITONAVIR
     Indication: Product used for unknown indication
     Dosage: UNK
     Route: 064
  2. LAMIVUDINE [Suspect]
     Active Substance: LAMIVUDINE
     Indication: Product used for unknown indication
     Route: 064
  3. TENOFOVIR DISOPROXIL FUMARATE [Suspect]
     Active Substance: TENOFOVIR DISOPROXIL FUMARATE
     Indication: Product used for unknown indication
     Route: 064
  4. RETROVIR [Suspect]
     Active Substance: ZIDOVUDINE
     Indication: Product used for unknown indication
     Route: 064

REACTIONS (10)
  - Congenital hydrocephalus [Not Recovered/Not Resolved]
  - Arnold-Chiari malformation [Unknown]
  - Brain herniation [Recovered/Resolved]
  - Meningomyelocele [Recovered/Resolved]
  - Hydromyelia [Unknown]
  - Necrotising colitis [Recovered/Resolved]
  - Hyperbilirubinaemia [Unknown]
  - Premature baby [Unknown]
  - Neonatal respiratory distress syndrome [Unknown]
  - Foetal exposure during pregnancy [Unknown]
